FAERS Safety Report 23442875 (Version 1)
Quarter: 2024Q1

REPORT INFORMATION
  Report Type: Spontaneous
  Country: FR (occurrence: FR)
  Receive Date: 20240125
  Receipt Date: 20240125
  Transmission Date: 20240409
  Serious: Yes (Death, Hospitalization)
  Sender: FDA-Public Use
  Company Number: None

PATIENT
  Age: 68 Year
  Sex: Male
  Weight: 68 kg

DRUGS (6)
  1. METFORMIN [Interacting]
     Active Substance: METFORMIN HYDROCHLORIDE
     Indication: Type 2 diabetes mellitus
     Dosage: NOT DOCUMENTED
     Route: 048
     Dates: end: 20210502
  2. PERINDOPRIL [Interacting]
     Active Substance: PERINDOPRIL
     Indication: Hypertension
     Dosage: NOT DOCUMENTED
     Route: 048
     Dates: end: 20210502
  3. INDAPAMIDE [Interacting]
     Active Substance: INDAPAMIDE
     Indication: Hypertension
     Dosage: UNKNOWN DOSE
     Route: 048
     Dates: end: 20210502
  4. FLUOXETINE HYDROCHLORIDE [Concomitant]
     Active Substance: FLUOXETINE HYDROCHLORIDE
     Indication: Mixed anxiety and depressive disorder
     Dosage: 20 MILLIGRAM, QD
     Route: 048
  5. ZYPREXA [Concomitant]
     Active Substance: OLANZAPINE
     Indication: Schizophrenia
     Dosage: 1 DOSAGE FORM, QD
     Route: 048
  6. NORDAZEPAM [Concomitant]
     Active Substance: NORDAZEPAM
     Indication: Mixed anxiety and depressive disorder
     Dosage: 1 DOSAGE FORM, QD
     Route: 048

REACTIONS (3)
  - Lactic acidosis [Fatal]
  - Drug level above therapeutic [Fatal]
  - Potentiating drug interaction [Fatal]

NARRATIVE: CASE EVENT DATE: 20210502
